FAERS Safety Report 19839822 (Version 1)
Quarter: 2021Q3

REPORT INFORMATION
  Report Type: Spontaneous
  Country: JP (occurrence: JP)
  Receive Date: 20210916
  Receipt Date: 20210916
  Transmission Date: 20211014
  Serious: Yes (Hospitalization, Other)
  Sender: FDA-Public Use
  Company Number: NVSJ2021JP009846

PATIENT
  Age: 78 Year
  Sex: Female
  Weight: 63.2 kg

DRUGS (5)
  1. DIOVAN [Suspect]
     Active Substance: VALSARTAN
     Indication: HYPERTENSION
     Dosage: 40 MG, QD
     Route: 048
     Dates: start: 20130117, end: 20200519
  2. ARICEPT [Concomitant]
     Active Substance: DONEPEZIL HYDROCHLORIDE
     Indication: DEMENTIA
     Dosage: 10 MG, QD
     Route: 048
     Dates: start: 2018
  3. MEMARY [Concomitant]
     Active Substance: MEMANTINE HYDROCHLORIDE
     Indication: DEMENTIA
     Dosage: 20 MG, QD
     Route: 048
  4. LECTISOL [Suspect]
     Active Substance: DAPSONE
     Indication: LINEAR IGA DISEASE
     Dosage: UNK
     Route: 048
     Dates: start: 20200527, end: 20200603
  5. AMALUET [Concomitant]
     Active Substance: AMLODIPINE BESYLATE\ATORVASTATIN CALCIUM
     Indication: HYPERTENSION
     Dosage: 1 DF, QD
     Route: 048
     Dates: start: 2005

REACTIONS (9)
  - Dementia Alzheimer^s type [Unknown]
  - Skin erosion [Unknown]
  - Methaemoglobinaemia [Unknown]
  - Pemphigoid [Unknown]
  - Blister [Recovered/Resolved]
  - Drug eruption [Unknown]
  - Pain [Unknown]
  - Erythema [Unknown]
  - Urticaria [Unknown]

NARRATIVE: CASE EVENT DATE: 201901
